FAERS Safety Report 9963967 (Version 2)
Quarter: 2014Q1

REPORT INFORMATION
  Report Type: Report from Study
  Country: FR (occurrence: FR)
  Receive Date: 20140305
  Receipt Date: 20140313
  Transmission Date: 20141002
  Serious: Yes (Hospitalization)
  Sender: FDA-Public Use
  Company Number: FR-VERTEX PHARMACEUTICALS INC-2014-001104

PATIENT
  Age: 45 Year
  Sex: Male
  Weight: 80 kg

DRUGS (12)
  1. VX-950 (TELAPREVIR) [Suspect]
     Indication: HEPATITIS C
     Dosage: 375 MG, 6 TIMES A DAY
     Route: 065
  2. PEGASYS [Suspect]
     Indication: HEPATITIS C
     Dosage: 135 ?G, QW
     Route: 065
  3. COPEGUS [Concomitant]
     Dosage: 200 MG, 6 TIMES A DAY
  4. FLAGYL [Concomitant]
     Dosage: 500 MG, TID
     Dates: end: 20110624
  5. VOGALENE [Concomitant]
     Dosage: 3 DF, QD
  6. SMECTA [Concomitant]
  7. FOLIC ACID [Concomitant]
     Dosage: 5 MG, BID
  8. ARESTAL [Concomitant]
     Dosage: 1 MG, PRN
  9. TITANOREINE (NOS) [Concomitant]
     Indication: HAEMORRHOIDS
     Dosage: UNK, BID
  10. TITANOREINE (NOS) [Concomitant]
     Indication: ANAL FISSURE
     Dosage: DOSAGE FORM: CREAM, 2 APPLICATIONS PER DAY
  11. ZYRTEC [Concomitant]
     Dosage: 1 DF, QD
  12. INEXIUM [Concomitant]
     Dosage: 40 MG, QD

REACTIONS (5)
  - Dyspnoea [Unknown]
  - Dermatitis [Unknown]
  - Thrombocytopenia [Recovering/Resolving]
  - Gastroenteritis staphylococcal [Recovered/Resolved]
  - Candida infection [Recovered/Resolved]
